FAERS Safety Report 4625824-7 (Version None)
Quarter: 2005Q1

REPORT INFORMATION
  Report Type: 
  Country: None (occurrence: None)
  Receive Date: 20050330
  Receipt Date: 20050314
  Transmission Date: 20050727
  Serious: Yes (Other)
  Sender: FDA-Public Use
  Company Number: FR_050105669

PATIENT
  Age: 58 Year
  Sex: Female

DRUGS (2)
  1. FORTEO [Suspect]
     Indication: OSTEOPOROSIS
     Dosage: 20 UG DAY
     Dates: start: 20050110, end: 20050118
  2. PROZAC [Concomitant]

REACTIONS (5)
  - CARDIOVASCULAR DISORDER [None]
  - FALL [None]
  - HUMERUS FRACTURE [None]
  - MALAISE [None]
  - STRESS FRACTURE [None]
